FAERS Safety Report 15090596 (Version 2)
Quarter: 2018Q3

REPORT INFORMATION
  Report Type: Spontaneous
  Country: US (occurrence: US)
  Receive Date: 20180629
  Receipt Date: 20180703
  Transmission Date: 20181010
  Serious: No
  Sender: FDA-Public Use
  Company Number: US-PFIZER INC-2018264053

PATIENT
  Age: 63 Year
  Sex: Female
  Weight: 77.98 kg

DRUGS (2)
  1. LIOTHYRONINE SODIUM. [Suspect]
     Active Substance: LIOTHYRONINE SODIUM
     Indication: AUTOIMMUNE THYROIDITIS
     Dosage: 10 UG, 1X/DAY (TWO TABLETS BY MOUTH ONCE A DAY)
     Route: 048
     Dates: start: 201803, end: 2018
  2. TIROSINT [Concomitant]
     Active Substance: LEVOTHYROXINE SODIUM
     Indication: AUTOIMMUNE THYROIDITIS
     Dosage: 150 UG, THREE TIMES A WEEK
     Route: 048
     Dates: start: 201805, end: 201805

REACTIONS (5)
  - Reaction to excipient [Recovered/Resolved]
  - Product coating issue [Unknown]
  - Rash [Recovered/Resolved]
  - Urticaria [Recovered/Resolved]
  - Body height decreased [Unknown]

NARRATIVE: CASE EVENT DATE: 201804
